FAERS Safety Report 9361521 (Version 1)
Quarter: 2013Q2

REPORT INFORMATION
  Report Type: Report from Study
  Country: US (occurrence: US)
  Receive Date: 20130621
  Receipt Date: 20130621
  Transmission Date: 20140414
  Serious: Yes (Hospitalization)
  Sender: FDA-Public Use
  Company Number: US-ROCHE-1227386

PATIENT
  Age: 53 Year
  Sex: Male
  Weight: 108.96 kg

DRUGS (1)
  1. ERIVEDGE [Suspect]
     Indication: BASAL CELL CARCINOMA
     Route: 048
     Dates: start: 20130501, end: 20130522

REACTIONS (7)
  - Gallbladder operation [Recovered/Resolved]
  - Cholecystitis infective [Recovered/Resolved]
  - Abdominal pain upper [Recovered/Resolved]
  - Swollen tongue [Recovered/Resolved]
  - Myalgia [Not Recovered/Not Resolved]
  - Arthralgia [Not Recovered/Not Resolved]
  - Throat tightness [Recovered/Resolved]
